FAERS Safety Report 13817143 (Version 3)
Quarter: 2017Q3

REPORT INFORMATION
  Report Type: Report from Study
  Country: US (occurrence: US)
  Receive Date: 20170731
  Receipt Date: 20170905
  Transmission Date: 20171127
  Serious: Yes (Death, Hospitalization)
  Sender: FDA-Public Use
  Company Number: US-TAIHO ONCOLOGY INC-EU-2017-01041

PATIENT
  Age: 57 Year
  Sex: Male
  Weight: 81.81 kg

DRUGS (11)
  1. IMODIUM [Concomitant]
     Active Substance: LOPERAMIDE HYDROCHLORIDE
     Dosage: NI
  2. ZOFRAN [Concomitant]
     Active Substance: ONDANSETRON HYDROCHLORIDE
     Dosage: NI
  3. LEVEMIR [Concomitant]
     Active Substance: INSULIN DETEMIR
     Dosage: NI
  4. EMBEDA [Concomitant]
     Active Substance: MORPHINE SULFATE\NALTREXONE HYDROCHLORIDE
  5. HYDROCODONE [Concomitant]
     Active Substance: HYDROCODONE
  6. LONSURF [Suspect]
     Active Substance: TIPIRACIL HYDROCHLORIDE\TRIFLURIDINE
     Indication: COLORECTAL CANCER METASTATIC
     Dosage: CYCLE 1
     Route: 048
     Dates: start: 20170717
  7. NAPROSYN [Concomitant]
     Active Substance: NAPROXEN
     Dosage: NI
  8. METFORMIN [Concomitant]
     Active Substance: METFORMIN HYDROCHLORIDE
     Dosage: NI
  9. SILVADENE [Concomitant]
     Active Substance: SILVER SULFADIAZINE
  10. DEMECLOCYCLINE [Concomitant]
     Active Substance: DEMECLOCYCLINE
     Indication: BLOOD SODIUM DECREASED
     Dosage: NI
  11. THEOSOL [Concomitant]
     Dosage: NI

REACTIONS (11)
  - Nausea [Unknown]
  - Pulmonary embolism [Unknown]
  - Diarrhoea [Unknown]
  - Dehydration [Unknown]
  - Disease progression [Fatal]
  - Asthenia [Unknown]
  - Intentional product misuse [Unknown]
  - Pneumonia aspiration [Unknown]
  - Pain [Unknown]
  - Weight decreased [Unknown]
  - Memory impairment [Unknown]

NARRATIVE: CASE EVENT DATE: 2017
